FAERS Safety Report 24529658 (Version 1)
Quarter: 2024Q4

REPORT INFORMATION
  Report Type: Spontaneous
  Country: US (occurrence: US)
  Receive Date: 20241021
  Receipt Date: 20241021
  Transmission Date: 20250114
  Serious: No
  Sender: AMGEN
  Company Number: US-AMGEN-USASP2024207175

PATIENT
  Age: 51 Year
  Sex: Female

DRUGS (1)
  1. TEPEZZA [Suspect]
     Active Substance: TEPROTUMUMAB-TRBW
     Indication: Endocrine ophthalmopathy
     Dosage: 50 MILLIGRAM/KILOGRAM, Q3WK
     Route: 040
     Dates: end: 20240703

REACTIONS (2)
  - Tinnitus [Unknown]
  - Photophobia [Unknown]
